FAERS Safety Report 6638617-6 (Version None)
Quarter: 2010Q1

REPORT INFORMATION
  Report Type: 
  Country: None (occurrence: None)
  Receive Date: 20100317
  Receipt Date: 20100305
  Transmission Date: 20100710
  Serious: Yes (Other)
  Sender: FDA-Public Use
  Company Number: US-ELI_LILLY_AND_COMPANY-US200912002753

PATIENT
  Sex: Male
  Weight: 92.971 kg

DRUGS (7)
  1. BYETTA [Suspect]
     Dosage: UNK, UNKNOWN
     Route: 065
     Dates: start: 20070101, end: 20090101
  2. LANTUS [Concomitant]
     Dosage: 20 U, UNKNOWN
  3. LANTUS [Concomitant]
     Dosage: 75 U, UNKNOWN
  4. INSULIN [Concomitant]
     Dosage: 7 U, 4/D
  5. INSULIN [Concomitant]
     Dosage: 28 U, UNKNOWN
  6. ORAL ANTIDIABETICS [Concomitant]
     Dosage: UNK, 2/D
  7. BETA BLOCKING AGENTS [Concomitant]
     Dosage: UNK, UNKNOWN

REACTIONS (5)
  - BLOOD GLUCOSE INCREASED [None]
  - INCREASED INSULIN REQUIREMENT [None]
  - LIVER DISORDER [None]
  - OFF LABEL USE [None]
  - PANCREATITIS [None]
